FAERS Safety Report 15905215 (Version 6)
Quarter: 2023Q4

REPORT INFORMATION
  Report Type: Report from Study
  Country: JP (occurrence: JP)
  Receive Date: 20190204
  Receipt Date: 20231222
  Transmission Date: 20240110
  Serious: Yes (Death)
  Sender: FDA-Public Use
  Company Number: JP-ABBVIE-18S-087-2575144-00

PATIENT
  Age: 70 Year
  Sex: Male
  Weight: 58 kg

DRUGS (5)
  1. CARBIDOPA\LEVODOPA [Suspect]
     Active Substance: CARBIDOPA\LEVODOPA
     Indication: Parkinson^s disease
     Dosage: MD: 7.0 ML, CD: 3.0 ML/HR ? 16 HRS, ED: 1.3 ML/UNIT ? 3
     Route: 050
     Dates: start: 20180307, end: 20181130
  2. CARBIDOPA\LEVODOPA [Suspect]
     Active Substance: CARBIDOPA\LEVODOPA
     Dosage: MD: 7 ML CD: 2.7 ML/HR ? 16 HRS
     Route: 050
     Dates: start: 20180112, end: 20180117
  3. CARBIDOPA\LEVODOPA [Suspect]
     Active Substance: CARBIDOPA\LEVODOPA
     Dosage: MD: 7 ML CD: 2.6 ML/HR ? 16 HRS
     Route: 050
     Dates: start: 20180118, end: 20180119
  4. CARBIDOPA\LEVODOPA [Suspect]
     Active Substance: CARBIDOPA\LEVODOPA
     Dosage: MD: 7 ML CD: 2.7 ML/HR ? 16 HRS?DRUG END DATE 2018
     Route: 050
     Dates: start: 20180119
  5. ROTIGOTINE [Concomitant]
     Active Substance: ROTIGOTINE
     Indication: Parkinson^s disease
     Dosage: 9 MILLIGRAM
     Dates: start: 20180307, end: 20181130

REACTIONS (3)
  - Acute myocardial infarction [Fatal]
  - Drug ineffective [Unknown]
  - Dyskinesia [Recovering/Resolving]

NARRATIVE: CASE EVENT DATE: 20180117
